FAERS Safety Report 20833771 (Version 3)
Quarter: 2025Q4

REPORT INFORMATION
  Report Type: Spontaneous
  Country: EU (occurrence: EU)
  Receive Date: 20220516
  Receipt Date: 20251204
  Transmission Date: 20260118
  Serious: Yes (Other)
  Sender: MYLAN
  Company Number: EU-SUN PHARMACEUTICAL INDUSTRIES LTD-2021RR-333502

PATIENT
  Age: 67 Year
  Sex: Male

DRUGS (36)
  1. GEMCITABINE [Suspect]
     Active Substance: GEMCITABINE
     Indication: Gastrointestinal carcinoma
     Dosage: UNK
     Route: 065
  2. GEMCITABINE [Suspect]
     Active Substance: GEMCITABINE
     Indication: Pancreatic carcinoma metastatic
     Dosage: UNK
  3. GEMCITABINE [Suspect]
     Active Substance: GEMCITABINE
     Dosage: UNK
  4. GEMCITABINE [Suspect]
     Active Substance: GEMCITABINE
     Dosage: UNK
     Route: 065
  5. GEMCITABINE [Suspect]
     Active Substance: GEMCITABINE
     Dosage: MPACA PALLIATIVE THERAPY
     Route: 065
  6. GEMCITABINE [Suspect]
     Active Substance: GEMCITABINE
     Dosage: MPACA PALLIATIVE THERAPY
  7. GEMCITABINE [Suspect]
     Active Substance: GEMCITABINE
     Dosage: MPACA PALLIATIVE THERAPY
  8. GEMCITABINE [Suspect]
     Active Substance: GEMCITABINE
     Dosage: MPACA PALLIATIVE THERAPY
     Route: 065
  9. FLUOROURACIL [Suspect]
     Active Substance: FLUOROURACIL
     Indication: Pancreatic carcinoma metastatic
     Dosage: 2400 MILLIGRAM/SQ. METER
  10. FLUOROURACIL [Suspect]
     Active Substance: FLUOROURACIL
     Dosage: 2400 MILLIGRAM/SQ. METER
  11. FLUOROURACIL [Suspect]
     Active Substance: FLUOROURACIL
     Dosage: 2400 MILLIGRAM/SQ. METER
     Route: 065
  12. FLUOROURACIL [Suspect]
     Active Substance: FLUOROURACIL
     Dosage: 2400 MILLIGRAM/SQ. METER
     Route: 065
  13. FLUOROURACIL [Suspect]
     Active Substance: FLUOROURACIL
     Dosage: 400 MILLIGRAM/SQ. METER
  14. FLUOROURACIL [Suspect]
     Active Substance: FLUOROURACIL
     Dosage: 400 MILLIGRAM/SQ. METER
  15. FLUOROURACIL [Suspect]
     Active Substance: FLUOROURACIL
     Dosage: 400 MILLIGRAM/SQ. METER
     Route: 065
  16. FLUOROURACIL [Suspect]
     Active Substance: FLUOROURACIL
     Dosage: 400 MILLIGRAM/SQ. METER
     Route: 065
  17. IRINOTECAN [Suspect]
     Active Substance: IRINOTECAN
     Indication: Pancreatic carcinoma metastatic
     Dosage: 70 MILLIGRAM/SQ. METER
  18. IRINOTECAN [Suspect]
     Active Substance: IRINOTECAN
     Dosage: 70 MILLIGRAM/SQ. METER
  19. IRINOTECAN [Suspect]
     Active Substance: IRINOTECAN
     Dosage: 70 MILLIGRAM/SQ. METER
     Route: 065
  20. IRINOTECAN [Suspect]
     Active Substance: IRINOTECAN
     Dosage: 70 MILLIGRAM/SQ. METER
     Route: 065
  21. IRINOTECAN [Suspect]
     Active Substance: IRINOTECAN
     Dosage: 40 MILLIGRAM/SQ. METER
  22. IRINOTECAN [Suspect]
     Active Substance: IRINOTECAN
     Dosage: 40 MILLIGRAM/SQ. METER
  23. IRINOTECAN [Suspect]
     Active Substance: IRINOTECAN
     Dosage: 40 MILLIGRAM/SQ. METER
     Route: 065
  24. IRINOTECAN [Suspect]
     Active Substance: IRINOTECAN
     Dosage: 40 MILLIGRAM/SQ. METER
     Route: 065
  25. PACLITAXEL [Suspect]
     Active Substance: PACLITAXEL
     Indication: Pancreatic carcinoma
     Dosage: UNK
  26. PACLITAXEL [Suspect]
     Active Substance: PACLITAXEL
     Indication: Gastrointestinal carcinoma
     Dosage: UNK
     Route: 065
  27. PACLITAXEL [Suspect]
     Active Substance: PACLITAXEL
     Dosage: UNK
     Route: 065
  28. PACLITAXEL [Suspect]
     Active Substance: PACLITAXEL
     Dosage: UNK
  29. LEUCOVORIN CALCIUM [Suspect]
     Active Substance: LEUCOVORIN CALCIUM
     Indication: Pancreatic carcinoma metastatic
     Dosage: 400 MILLIGRAM/SQ. METER
  30. LEUCOVORIN CALCIUM [Suspect]
     Active Substance: LEUCOVORIN CALCIUM
     Dosage: 400 MILLIGRAM/SQ. METER
     Route: 065
  31. LEUCOVORIN CALCIUM [Suspect]
     Active Substance: LEUCOVORIN CALCIUM
     Dosage: 400 MILLIGRAM/SQ. METER
     Route: 065
  32. LEUCOVORIN CALCIUM [Suspect]
     Active Substance: LEUCOVORIN CALCIUM
     Dosage: 400 MILLIGRAM/SQ. METER
  33. PACLITAXEL [Suspect]
     Active Substance: PACLITAXEL
     Indication: Pancreatic carcinoma metastatic
     Dosage: UNK (INJECTION FOR INFUSION)
  34. PACLITAXEL [Suspect]
     Active Substance: PACLITAXEL
     Dosage: UNK (INJECTION FOR INFUSION)
     Route: 065
  35. PACLITAXEL [Suspect]
     Active Substance: PACLITAXEL
     Dosage: UNK (INJECTION FOR INFUSION)
     Route: 065
  36. PACLITAXEL [Suspect]
     Active Substance: PACLITAXEL
     Dosage: UNK (INJECTION FOR INFUSION)

REACTIONS (12)
  - Disease progression [Unknown]
  - Abdominal pain [Unknown]
  - Pancreatic carcinoma [Unknown]
  - Metastases to peritoneum [Unknown]
  - Malignant neoplasm progression [Unknown]
  - Back pain [Unknown]
  - Neuropathy peripheral [Unknown]
  - Diarrhoea [Unknown]
  - Neutropenia [Unknown]
  - Therapeutic product effect incomplete [Unknown]
  - Fatigue [Unknown]
  - Product use in unapproved indication [Unknown]
